FAERS Safety Report 26086523 (Version 1)
Quarter: 2025Q4

REPORT INFORMATION
  Report Type: Spontaneous
  Country: IN (occurrence: IN)
  Receive Date: 20251125
  Receipt Date: 20251125
  Transmission Date: 20260118
  Serious: Yes (Other)
  Sender: ROCHE
  Company Number: IN-ROCHE-10000439519

PATIENT
  Sex: Male

DRUGS (2)
  1. RITUXIMAB [Suspect]
     Active Substance: RITUXIMAB
     Indication: Diffuse large B-cell lymphoma
     Route: 065
     Dates: start: 20240425
  2. RITUXIMAB [Suspect]
     Active Substance: RITUXIMAB
     Route: 065

REACTIONS (1)
  - Diffuse large B-cell lymphoma [Unknown]
